FAERS Safety Report 6942307-X (Version None)
Quarter: 2010Q3

REPORT INFORMATION
  Report Type: 
  Country: None (occurrence: None)
  Receive Date: 20100826
  Receipt Date: 20100818
  Transmission Date: 20110219
  Serious: Yes (Other)
  Sender: FDA-Public Use
  Company Number: GB-NOVOPROD-312952

PATIENT
  Age: 89 Year
  Sex: Female
  Weight: 72 kg

DRUGS (4)
  1. LEVEMIR [Suspect]
     Indication: TYPE 2 DIABETES MELLITUS
     Dosage: 24 IU, QD
     Route: 058
     Dates: start: 20100719, end: 20100811
  2. RAMIPRIL [Concomitant]
     Indication: PRODUCT USED FOR UNKNOWN INDICATION
  3. SIMVASTATIN [Concomitant]
  4. OMEPRAZOLE [Concomitant]

REACTIONS (4)
  - BLISTER [None]
  - PAIN [None]
  - PRURITUS [None]
  - URINARY TRACT INFECTION [None]
